FAERS Safety Report 11151516 (Version 2)
Quarter: 2015Q3

REPORT INFORMATION
  Report Type: Report from Study
  Country: US (occurrence: US)
  Receive Date: 20150601
  Receipt Date: 20150828
  Transmission Date: 20151125
  Serious: Yes (Hospitalization)
  Sender: FDA-Public Use
  Company Number: US-BIOGENIDEC-2015BI070975

PATIENT
  Age: 59 Year
  Sex: Male

DRUGS (20)
  1. TECFIDERA [Suspect]
     Active Substance: DIMETHYL FUMARATE
     Indication: MULTIPLE SCLEROSIS
     Route: 048
     Dates: start: 20150501
  2. DETROL LA [Concomitant]
     Active Substance: TOLTERODINE TARTRATE
  3. VERAPAMIL [Concomitant]
     Active Substance: VERAPAMIL HYDROCHLORIDE
  4. TECFIDERA [Suspect]
     Active Substance: DIMETHYL FUMARATE
     Indication: MULTIPLE SCLEROSIS
     Route: 048
     Dates: start: 20150501
  5. TOLTERODINE [Concomitant]
     Active Substance: TOLTERODINE
  6. FUROSEMIDE. [Concomitant]
     Active Substance: FUROSEMIDE
  7. AMPYRA [Concomitant]
     Active Substance: DALFAMPRIDINE
  8. VITAMIN D [Concomitant]
     Active Substance: CHOLECALCIFEROL
  9. LEVOTHYROXIN [Concomitant]
     Active Substance: LEVOTHYROXINE
  10. LASIX [Concomitant]
     Active Substance: FUROSEMIDE
  11. CITALOPRAM [Concomitant]
     Active Substance: CITALOPRAM HYDROBROMIDE
  12. SEPTRA [Concomitant]
     Active Substance: SULFAMETHOXAZOLE\TRIMETHOPRIM
  13. SIMVASTATIN. [Concomitant]
     Active Substance: SIMVASTATIN
  14. SULFAMETHOXAZOLE AND TRIMETHOPRIM DOUBLE STRENGTH [Concomitant]
     Active Substance: SULFAMETHOXAZOLE\TRIMETHOPRIM
  15. VIMPAT [Concomitant]
     Active Substance: LACOSAMIDE
  16. BACLOFEN. [Concomitant]
     Active Substance: BACLOFEN
  17. GEMFIBROZIL. [Concomitant]
     Active Substance: GEMFIBROZIL
  18. FENOFIBRATE. [Concomitant]
     Active Substance: FENOFIBRATE
  19. HYOSCYAMINE. [Concomitant]
     Active Substance: HYOSCYAMINE
  20. ALLOPURINOL. [Concomitant]
     Active Substance: ALLOPURINOL

REACTIONS (4)
  - Bacterial infection [Not Recovered/Not Resolved]
  - Fungal infection [Not Recovered/Not Resolved]
  - Acute kidney injury [Not Recovered/Not Resolved]
  - Urinary tract infection [Not Recovered/Not Resolved]

NARRATIVE: CASE EVENT DATE: 201505
